FAERS Safety Report 18915867 (Version 2)
Quarter: 2022Q1

REPORT INFORMATION
  Report Type: Report from Study
  Country: US (occurrence: US)
  Receive Date: 20210219
  Receipt Date: 20220103
  Transmission Date: 20220423
  Serious: No
  Sender: FDA-Public Use
  Company Number: US-TEVA-2021-US-1881343

PATIENT
  Sex: Female

DRUGS (2)
  1. TREPROSTINIL [Suspect]
     Active Substance: TREPROSTINIL
     Indication: Pulmonary arterial hypertension
     Dosage: DOSE: 19NG/KG/MIN
     Route: 042
     Dates: start: 20201209
  2. TREPROSTINIL [Suspect]
     Active Substance: TREPROSTINIL
     Dosage: DOSE: 35NG/KG/MIN
     Route: 042
     Dates: start: 20201117

REACTIONS (8)
  - Rhinorrhoea [Unknown]
  - Nasal congestion [Unknown]
  - Illness [Unknown]
  - Fatigue [Unknown]
  - Cough [Unknown]
  - Dizziness [Unknown]
  - Influenza [Unknown]
  - Product supply issue [Unknown]
